FAERS Safety Report 25708899 (Version 1)
Quarter: 2025Q3

REPORT INFORMATION
  Report Type: Spontaneous
  Country: GB (occurrence: GB)
  Receive Date: 20250821
  Receipt Date: 20250821
  Transmission Date: 20251020
  Serious: Yes (Hospitalization)
  Sender: TEVA
  Company Number: GB-ACTAVIS-2013-21469

PATIENT
  Age: 58 Year
  Sex: Female
  Weight: 80 kg

DRUGS (7)
  1. DOCETAXEL [Suspect]
     Active Substance: DOCETAXEL
     Indication: Breast cancer
     Dosage: 180 MG, DAILY, LAST DOSE PRIOR TO SAE ON 31/OCT/2012
     Route: 042
     Dates: start: 20121010
  2. DOCETAXEL [Suspect]
     Active Substance: DOCETAXEL
     Indication: Breast cancer
     Dosage: 130 MG, DAILY
     Route: 042
     Dates: start: 20121121
  3. TRASTUZUMAB [Suspect]
     Active Substance: TRASTUZUMAB
     Indication: Breast cancer
     Dosage: LAST DOSE PRIOR TO SAE ON 31/OCT/2012, 472.5 MG DAILY
     Route: 042
     Dates: start: 20121010
  4. CIPROFLOXACIN [Concomitant]
     Active Substance: CIPROFLOXACIN
     Indication: Product used for unknown indication
     Dates: start: 20121101, end: 20121105
  5. METOCLOPRAMIDE [Concomitant]
     Active Substance: METOCLOPRAMIDE
     Indication: Product used for unknown indication
     Dates: start: 20121031, end: 20121105
  6. FLUOXETINE [Concomitant]
     Active Substance: FLUOXETINE HYDROCHLORIDE
     Indication: Product used for unknown indication
     Dates: start: 2011
  7. PLACEBO [Suspect]
     Active Substance: PLACEBO
     Indication: Breast cancer
     Dosage: LAST DOSE PRIOR TO SAE ON 31/OCT/2012
     Route: 042
     Dates: start: 20121010

REACTIONS (1)
  - Malaise [Recovered/Resolved]

NARRATIVE: CASE EVENT DATE: 20121103
